FAERS Safety Report 25738349 (Version 2)
Quarter: 2025Q3

REPORT INFORMATION
  Report Type: Spontaneous
  Country: RU (occurrence: RU)
  Receive Date: 20250829
  Receipt Date: 20250924
  Transmission Date: 20251021
  Serious: Yes (Other)
  Sender: MEDEXUS PHARMA
  Company Number: RU-MEDEXUS PHARMA, INC.-2025MED00264

PATIENT
  Age: 16 Year

DRUGS (2)
  1. METHOTREXATE [Suspect]
     Active Substance: METHOTREXATE
     Indication: Anaplastic large cell lymphoma T- and null-cell types stage III
  2. METHOTREXATE [Suspect]
     Active Substance: METHOTREXATE
     Indication: Prophylaxis
     Route: 037

REACTIONS (5)
  - Brain oedema [Recovering/Resolving]
  - Paraparesis [Not Recovered/Not Resolved]
  - Aphasia [Recovering/Resolving]
  - Neurotoxicity [Recovering/Resolving]
  - Respiratory failure [Recovering/Resolving]
